FAERS Safety Report 5314158-3 (Version None)
Quarter: 2007Q2

REPORT INFORMATION
  Report Type: 
  Country: None (occurrence: None)
  Receive Date: 20070426
  Receipt Date: 20070417
  Transmission Date: 20071010
  Serious: Yes (Other)
  Sender: FDA-Public Use
  Company Number: 2007SP007470

PATIENT
  Age: 69 Year
  Sex: Male

DRUGS (8)
  1. REBETOL [Suspect]
     Indication: HEPATITIS C
     Dosage: 600 MG; QD; PO
     Route: 048
     Dates: start: 20020101
  2. PEGINTRON (PEINTERFERON ALFA-2B)  (PEINTERFERON ALFA-2B) [Suspect]
     Indication: HEPATITIS C
  3. LIQUAEMIN INJ [Concomitant]
  4. MARCUMAR [Concomitant]
  5. METO ZEROK [Concomitant]
  6. LISINOPRIL [Concomitant]
  7. PASPERTIN [Concomitant]
  8. DAFALGAN [Concomitant]

REACTIONS (2)
  - COLONIC PSEUDO-OBSTRUCTION [None]
  - RENAL FAILURE ACUTE [None]
